FAERS Safety Report 6762786-0 (Version None)
Quarter: 2010Q2

REPORT INFORMATION
  Report Type: 
  Country: None (occurrence: None)
  Receive Date: 20100609
  Receipt Date: 20100601
  Transmission Date: 20101027
  Serious: Yes (Other)
  Sender: FDA-Public Use
  Company Number: B0658878A

PATIENT
  Age: 9 Year
  Sex: Male

DRUGS (8)
  1. FLUTIDE [Suspect]
     Indication: DRUG USE FOR UNKNOWN INDICATION
     Dosage: 100MCG PER DAY
     Route: 055
  2. FLUTIDE [Suspect]
     Indication: INFANTILE ASTHMA
     Dosage: 50MCG PER DAY
     Route: 055
  3. LOCOID [Suspect]
     Route: 061
  4. HIRUDOID [Concomitant]
     Route: 065
  5. RINDERON [Concomitant]
     Route: 065
  6. PROTOPIC [Concomitant]
     Route: 061
  7. ONON [Concomitant]
     Route: 048
  8. ALLEGRA [Concomitant]
     Route: 048

REACTIONS (1)
  - VISUAL ACUITY REDUCED [None]
